FAERS Safety Report 11798190 (Version 1)
Quarter: 2015Q4

REPORT INFORMATION
  Report Type: Spontaneous
  Country: US (occurrence: US)
  Receive Date: 20151203
  Receipt Date: 20151203
  Transmission Date: 20160305
  Serious: No
  Sender: FDA-Public Use
  Company Number: US-REGENERON PHARMACEUTICALS, INC.-2014-21061

PATIENT

DRUGS (2)
  1. SOOTHE                             /00256502/ [Suspect]
     Active Substance: TETRAHYDROZOLINE HYDROCHLORIDE
     Indication: DRY EYE
     Dosage: UNK, AS NECESSARY
  2. EYLEA [Suspect]
     Active Substance: AFLIBERCEPT
     Indication: NEOVASCULAR AGE-RELATED MACULAR DEGENERATION
     Dosage: 2 MG MILLIGRAM(S)/0.05 ML, EVERY 4-6 WEEKS
     Route: 031
     Dates: start: 20131118, end: 20140814

REACTIONS (2)
  - Dry eye [None]
  - Eye irritation [Recovering/Resolving]

NARRATIVE: CASE EVENT DATE: 201412
